FAERS Safety Report 18921087 (Version 2)
Quarter: 2021Q1

REPORT INFORMATION
  Report Type: Spontaneous
  Country: FR (occurrence: FR)
  Receive Date: 20210222
  Receipt Date: 20210304
  Transmission Date: 20210420
  Serious: Yes (Hospitalization, Other)
  Sender: FDA-Public Use
  Company Number: NVSC2021FR036124

PATIENT
  Age: 37 Year
  Sex: Male
  Weight: 67 kg

DRUGS (5)
  1. CELLCEPT [Concomitant]
     Active Substance: MYCOPHENOLATE MOFETIL\MYCOPHENOLATE MOFETIL HYDROCHLORIDE
     Indication: IMMUNOSUPPRESSANT DRUG THERAPY
     Dosage: UNK (1000 (UNIT NOT REPORTED), TOTAL DAILY DOSE)
     Route: 065
     Dates: start: 20161215
  2. THYMOGLOBULINE [Concomitant]
     Active Substance: LAPINE T-LYMPHOCYTE IMMUNE GLOBULIN
     Indication: TRANSPLANT REJECTION
     Dosage: UNK (40 (UNIT NOT REPORTED), TOTAL DAILY DOSE )
     Route: 065
     Dates: start: 20200114, end: 20200116
  3. SOLU?MEDROL [Concomitant]
     Active Substance: METHYLPREDNISOLONE SODIUM SUCCINATE
     Indication: TRANSPLANT REJECTION
     Dosage: UNK (75 (UNIT NOT REPORTED), TOTAL DAILY DOSE)
     Route: 065
     Dates: start: 20200114, end: 20200117
  4. SOLUPRED [Concomitant]
     Indication: IMMUNOSUPPRESSANT DRUG THERAPY
     Dosage: UNK (5 (UNIT NOT REPORTED), TOTAL DAILY DOSE)
     Route: 065
     Dates: start: 20170105
  5. TACROLIMUS. [Suspect]
     Active Substance: TACROLIMUS
     Indication: RENAL TRANSPLANT
     Dosage: 9 UNK, QD
     Route: 065
     Dates: start: 20200117

REACTIONS (3)
  - Urinary tract infection staphylococcal [Recovered/Resolved]
  - Urinary tract infection pseudomonal [Recovered/Resolved]
  - Complications of transplanted kidney [Recovered/Resolved]

NARRATIVE: CASE EVENT DATE: 20200124
